FAERS Safety Report 26076533 (Version 2)
Quarter: 2025Q4

REPORT INFORMATION
  Report Type: Spontaneous
  Country: EU (occurrence: EU)
  Receive Date: 20251121
  Receipt Date: 20251202
  Transmission Date: 20260118
  Serious: Yes (Other)
  Sender: GE HEALTHCARE
  Company Number: None

PATIENT
  Age: 46 Year
  Sex: Male
  Weight: 76 kg

DRUGS (3)
  1. VISIPAQUE [Suspect]
     Active Substance: IODIXANOL
     Indication: Diagnostic procedure
     Dosage: 130 MG/ML, TOTAL
     Route: 042
     Dates: start: 20251103
  2. PROZAC [Concomitant]
     Active Substance: FLUOXETINE HYDROCHLORIDE
     Indication: Depression
     Dosage: 20 MG, QD
     Route: 048
  3. ANAFRANIL [Concomitant]
     Active Substance: CLOMIPRAMINE HYDROCHLORIDE
     Indication: Depression
     Dosage: UNK
     Route: 065

REACTIONS (6)
  - Dry mouth [Recovered/Resolved]
  - Eyelid oedema [Recovered/Resolved]
  - Cough [Recovered/Resolved]
  - Dyspnoea [Recovered/Resolved]
  - Erythema [Recovered/Resolved]
  - Chest discomfort [Recovered/Resolved]

NARRATIVE: CASE EVENT DATE: 20251103
